FAERS Safety Report 23048092 (Version 1)
Quarter: 2023Q4

REPORT INFORMATION
  Report Type: Spontaneous
  Country: US (occurrence: US)
  Receive Date: 20231010
  Receipt Date: 20231010
  Transmission Date: 20240109
  Serious: No
  Sender: FDA-Public Use
  Company Number: US-SUN PHARMACEUTICAL INDUSTRIES LTD-2023R1-383081

PATIENT
  Sex: Female

DRUGS (1)
  1. CEQUA [Suspect]
     Active Substance: CYCLOSPORINE
     Indication: Dry eye
     Dosage: UNK 1 DROP TO EACH EYE 2 TIMES A DAY
     Route: 047

REACTIONS (4)
  - Eye irritation [Recovering/Resolving]
  - Therapy non-responder [Unknown]
  - Disease progression [Unknown]
  - Therapy cessation [Unknown]
